FAERS Safety Report 13900265 (Version 1)
Quarter: 2017Q3

REPORT INFORMATION
  Report Type: Spontaneous
  Country: CA (occurrence: CA)
  Receive Date: 20170823
  Receipt Date: 20170823
  Transmission Date: 20171127
  Serious: Yes (Other)
  Sender: FDA-Public Use
  Company Number: CA-IMPAX LABORATORIES, INC-2017-IPXL-02433

PATIENT
  Age: 49 Year
  Sex: Female

DRUGS (15)
  1. ADRENACLICK [Suspect]
     Active Substance: EPINEPHRINE
     Dosage: 40 MCG/MINUTE, UNK
     Route: 050
  2. ESCITALOPRAM [Suspect]
     Active Substance: ESCITALOPRAM OXALATE
     Indication: INTENTIONAL OVERDOSE
     Dosage: 60 MG, UNK
  3. DEXTROSE. [Concomitant]
     Active Substance: DEXTROSE
     Indication: INTENTIONAL OVERDOSE
     Dosage: 1 AMPULE OF DEXTROSE 50% IN WATER
     Route: 042
  4. RISPERIDONE. [Suspect]
     Active Substance: RISPERIDONE
     Dosage: 6 MG, UNK
  5. CALCIUM GLUCONATE. [Concomitant]
     Active Substance: CALCIUM GLUCONATE
     Indication: INTENTIONAL OVERDOSE
     Dosage: 2 G, UNK
     Route: 042
  6. GLUCAGON. [Concomitant]
     Active Substance: GLUCAGON
     Indication: INTENTIONAL OVERDOSE
     Dosage: 5 MG, UNK
     Route: 042
  7. VASOPRESSIN. [Suspect]
     Active Substance: VASOPRESSIN
     Indication: HYPOTENSION
     Dosage: 2.4 UNITS/HOUR
     Route: 050
  8. ADRENACLICK [Suspect]
     Active Substance: EPINEPHRINE
     Indication: HYPOTENSION
     Dosage: 30 MCG/MINUTE
     Route: 050
  9. AMLODIPINE [Suspect]
     Active Substance: AMLODIPINE BESYLATE
     Indication: INTENTIONAL OVERDOSE
     Dosage: 150 MG, UNK
  10. ACTIVATED CHARCOAL [Concomitant]
     Active Substance: ACTIVATED CHARCOAL
     Indication: INTENTIONAL OVERDOSE
     Dosage: 50 G, UNK
     Route: 045
  11. NOREPINEPHRINE. [Suspect]
     Active Substance: NOREPINEPHRINE
     Indication: HYPOTENSION
     Dosage: 30 MCG/MINUTE
     Route: 050
  12. NOREPINEPHRINE. [Suspect]
     Active Substance: NOREPINEPHRINE
     Dosage: 40 MCG/MINUTE, UNK
     Route: 050
  13. NOREPINEPHRINE. [Suspect]
     Active Substance: NOREPINEPHRINE
     Dosage: 25 MCG/MINUTE, UNK
     Route: 050
  14. NOREPINEPHRINE. [Suspect]
     Active Substance: NOREPINEPHRINE
     Dosage: 10 MCG/MINUTES, UNK
     Route: 050
  15. DEXTROSE. [Concomitant]
     Active Substance: DEXTROSE
     Dosage: 10% DEXTROSE INFUSION
     Route: 042

REACTIONS (6)
  - Cerebral infarction [Unknown]
  - Drug ineffective [Unknown]
  - Pulmonary oedema [Unknown]
  - Optic nerve infarction [Not Recovered/Not Resolved]
  - Hypokalaemia [Unknown]
  - Hypoglycaemia [Unknown]
